FAERS Safety Report 12521219 (Version 3)
Quarter: 2016Q3

REPORT INFORMATION
  Report Type: Report from Study
  Country: FR (occurrence: FR)
  Receive Date: 20160701
  Receipt Date: 20160912
  Transmission Date: 20161109
  Serious: Yes (Hospitalization)
  Sender: FDA-Public Use
  Company Number: FR-JNJFOC-20160613949

PATIENT
  Age: 61 Year
  Sex: Female
  Weight: 56 kg

DRUGS (6)
  1. IBRUTINIB [Suspect]
     Active Substance: IBRUTINIB
     Indication: OCULAR LYMPHOMA
     Route: 048
     Dates: start: 20160502, end: 20160606
  2. IBRUTINIB [Suspect]
     Active Substance: IBRUTINIB
     Indication: CENTRAL NERVOUS SYSTEM LYMPHOMA
     Route: 048
     Dates: start: 20160502, end: 20160606
  3. IBRUTINIB [Suspect]
     Active Substance: IBRUTINIB
     Indication: CENTRAL NERVOUS SYSTEM LYMPHOMA
     Route: 048
     Dates: start: 20160609
  4. DIFFU K [Concomitant]
     Active Substance: POTASSIUM CHLORIDE
     Indication: HYPOKALAEMIA
     Route: 065
  5. IBRUTINIB [Suspect]
     Active Substance: IBRUTINIB
     Indication: OCULAR LYMPHOMA
     Route: 048
     Dates: start: 20160609
  6. PANTOPRAZOLE [Concomitant]
     Active Substance: PANTOPRAZOLE SODIUM
     Indication: ULCER
     Route: 065
     Dates: start: 201604

REACTIONS (1)
  - Somnolence [Recovered/Resolved with Sequelae]

NARRATIVE: CASE EVENT DATE: 20160610
